FAERS Safety Report 22296641 (Version 4)
Quarter: 2023Q4

REPORT INFORMATION
  Report Type: Report from Study
  Country: CA (occurrence: CA)
  Receive Date: 20230508
  Receipt Date: 20231106
  Transmission Date: 20240109
  Serious: No
  Sender: FDA-Public Use
  Company Number: CA-ABBVIE-4749317

PATIENT
  Age: 71 Year
  Sex: Female

DRUGS (15)
  1. PLACEBO [Suspect]
     Active Substance: UNSPECIFIED INGREDIENT
     Indication: Dermatitis atopic
     Route: 048
     Dates: start: 20190221, end: 20190625
  2. UPADACITINIB [Suspect]
     Active Substance: UPADACITINIB
     Indication: Dermatitis atopic
     Route: 048
     Dates: start: 20190626, end: 20211028
  3. AMLODIPINE [Concomitant]
     Active Substance: AMLODIPINE BESYLATE
     Indication: Hypertension
     Route: 048
     Dates: start: 1998
  4. HYDROCHLOROTHIAZIDE\VALSARTAN [Concomitant]
     Active Substance: HYDROCHLOROTHIAZIDE\VALSARTAN
     Indication: Hypertension
     Route: 048
     Dates: start: 1998
  5. CAL-OS [Concomitant]
     Indication: Osteoporosis prophylaxis
     Route: 048
     Dates: start: 2013
  6. SYMBICORT [Concomitant]
     Active Substance: BUDESONIDE\FORMOTEROL FUMARATE DIHYDRATE
     Indication: Asthma
     Dosage: DOSE- 2 INHALATIONS
     Route: 055
     Dates: start: 2007
  7. COSOPT [Concomitant]
     Active Substance: DORZOLAMIDE HYDROCHLORIDE\TIMOLOL MALEATE
     Indication: Glaucoma
     Dosage: (2%-0.5%)
     Route: 047
     Dates: start: 2008
  8. LATANOPROST [Concomitant]
     Active Substance: LATANOPROST
     Indication: Glaucoma
     Dosage: (0.005%)
     Route: 047
     Dates: start: 2008
  9. PANTOPRAZOLE SODIUM [Concomitant]
     Active Substance: PANTOPRAZOLE SODIUM
     Indication: Gastrooesophageal reflux disease
     Route: 048
     Dates: start: 2008
  10. ROSUVASTATIN [Concomitant]
     Active Substance: ROSUVASTATIN
     Indication: Dyslipidaemia
     Route: 048
     Dates: start: 2003
  11. SOLIFENACIN [Concomitant]
     Active Substance: SOLIFENACIN
     Indication: Hypertonic bladder
     Route: 048
     Dates: start: 2013
  12. ACETAMINOPHEN [Concomitant]
     Active Substance: ACETAMINOPHEN
     Indication: Pain in extremity
     Route: 048
     Dates: start: 20210615, end: 202108
  13. CERAVE [Concomitant]
     Indication: Dry skin prophylaxis
     Dosage: 1 APPLICATION
     Route: 061
     Dates: start: 202010
  14. ZOVIRAX [Concomitant]
     Active Substance: ACYCLOVIR
     Indication: Oral herpes
     Dosage: TIME INTERVAL: AS NECESSARY: 1 APPLICATION
     Route: 061
     Dates: start: 2018
  15. DIAMOX SEQUELS [Concomitant]
     Active Substance: ACETAZOLAMIDE
     Indication: Glaucoma
     Route: 048
     Dates: start: 20210526, end: 20210709

REACTIONS (1)
  - Vitreous floaters [Not Recovered/Not Resolved]

NARRATIVE: CASE EVENT DATE: 20210701
